FAERS Safety Report 16724934 (Version 1)
Quarter: 2019Q3

REPORT INFORMATION
  Report Type: Spontaneous
  Country: US (occurrence: US)
  Receive Date: 20190704
  Receipt Date: 20190704
  Transmission Date: 20191005
  Serious: Yes (Hospitalization)
  Sender: FDA-Public Use
  Company Number: None

PATIENT
  Age: 49 Year
  Sex: Female
  Weight: 77.6 kg

DRUGS (1)
  1. DOXIL [Suspect]
     Active Substance: DOXORUBICIN HYDROCHLORIDE
     Dates: end: 20190514

REACTIONS (6)
  - Malignant neoplasm progression [None]
  - Intestinal dilatation [None]
  - Adverse drug reaction [None]
  - Therapy cessation [None]
  - Vomiting [None]
  - Ovarian cancer recurrent [None]

NARRATIVE: CASE EVENT DATE: 20190607
